FAERS Safety Report 12750224 (Version 1)
Quarter: 2016Q3

REPORT INFORMATION
  Report Type: Spontaneous
  Country: US (occurrence: US)
  Receive Date: 20160915
  Receipt Date: 20160915
  Transmission Date: 20161109
  Serious: Yes (Other)
  Sender: FDA-Public Use
  Company Number: None

PATIENT
  Age: 60 Year
  Sex: Female
  Weight: 61.65 kg

DRUGS (6)
  1. SULFAMETH/TMP [Suspect]
     Active Substance: SULFAMETHOXAZOLE\TRIMETHOPRIM
     Indication: DYSURIA
     Route: 048
     Dates: start: 20160912
  2. PROAIR HFA [Concomitant]
     Active Substance: ALBUTEROL SULFATE
  3. LICORICE CANDIES [Concomitant]
  4. MINT AND OTHER HERBAL TEAS [Concomitant]
  5. EGYPTIAN LICORICE TEA [Concomitant]
  6. SULFAMETH/TMP [Suspect]
     Active Substance: SULFAMETHOXAZOLE\TRIMETHOPRIM
     Indication: URINARY TRACT INFECTION
     Route: 048
     Dates: start: 20160912

REACTIONS (1)
  - Dysphonia [None]

NARRATIVE: CASE EVENT DATE: 20160914
